FAERS Safety Report 18970040 (Version 2)
Quarter: 2021Q3

REPORT INFORMATION
  Report Type: Spontaneous
  Country: CA (occurrence: CA)
  Receive Date: 20210304
  Receipt Date: 20210707
  Transmission Date: 20211014
  Serious: Yes (Hospitalization, Other)
  Sender: FDA-Public Use
  Company Number: CA-LUNDBECK-DKLU3029639

PATIENT
  Age: 11 Year
  Sex: Male

DRUGS (41)
  1. CELECOXIB. [Suspect]
     Active Substance: CELECOXIB
     Indication: BACK PAIN
     Dosage: 100 MG, Q12H
     Route: 048
     Dates: start: 2016
  2. SALBUTAMOL SULFATE [Suspect]
     Active Substance: ALBUTEROL SULFATE
     Indication: PRODUCT USED FOR UNKNOWN INDICATION
     Dosage: 100 UG, Q4H (2 PUFFS, PRN)
     Route: 065
  3. COLECALCIFEROL [Suspect]
     Active Substance: CHOLECALCIFEROL
     Indication: PRODUCT USED FOR UNKNOWN INDICATION
     Dosage: 200 IU, QD
     Route: 048
  4. METHADONE [Suspect]
     Active Substance: METHADONE HYDROCHLORIDE
     Dosage: 2 MG, Q8H
     Route: 048
     Dates: start: 2016
  5. DIMENHYDRINATE. [Suspect]
     Active Substance: DIMENHYDRINATE
     Indication: CONSTIPATION
     Dosage: 20 MG, QD
     Route: 048
  6. GABAPENTIN. [Suspect]
     Active Substance: GABAPENTIN
     Indication: PAIN MANAGEMENT
     Dosage: 300 MG, Q8H
     Route: 048
  7. FLUTICASONE PROPIONATE. [Suspect]
     Active Substance: FLUTICASONE PROPIONATE
     Indication: PRODUCT USED FOR UNKNOWN INDICATION
     Dosage: 250 UG, QD (2 PUFFS)
     Route: 065
  8. LORAZEPAM. [Suspect]
     Active Substance: LORAZEPAM
     Indication: SEIZURE
     Dosage: 0.5 MG, QD
     Route: 060
  9. MONTELUKAST [Suspect]
     Active Substance: MONTELUKAST SODIUM
     Indication: PRODUCT USED FOR UNKNOWN INDICATION
     Dosage: 10 MG, QD
     Route: 048
  10. FLUOXETINE HYDROCHLORIDE. [Suspect]
     Active Substance: FLUOXETINE HYDROCHLORIDE
     Indication: PRODUCT USED FOR UNKNOWN INDICATION
     Dosage: 20 MG, QD
     Route: 048
  11. HYDROMORPHONE [Suspect]
     Active Substance: HYDROMORPHONE
     Indication: PAIN MANAGEMENT
  12. DOCOSAHEXAENOIC ACID [Suspect]
     Active Substance: DOCONEXENT
     Indication: PRODUCT USED FOR UNKNOWN INDICATION
     Dosage: UNK
  13. METHOCARBAMOL. [Suspect]
     Active Substance: METHOCARBAMOL
     Indication: PRODUCT USED FOR UNKNOWN INDICATION
     Dosage: UNK
     Dates: start: 2016
  14. CLOBAZAM. [Suspect]
     Active Substance: CLOBAZAM
     Indication: PRODUCT USED FOR UNKNOWN INDICATION
     Dosage: 20 MG, Q12H
     Route: 048
  15. DULCOLAX NOS [Suspect]
     Active Substance: BISACODYL OR DOCUSATE SODIUM
     Indication: PRODUCT USED FOR UNKNOWN INDICATION
     Dosage: 5 MG, QD
     Route: 048
  16. ARIPIPRAZOLE. [Suspect]
     Active Substance: ARIPIPRAZOLE
     Indication: PRODUCT USED FOR UNKNOWN INDICATION
     Dosage: 2 MG, Q8H
     Route: 048
  17. LORAZEPAM. [Suspect]
     Active Substance: LORAZEPAM
     Indication: MUSCLE SPASMS
  18. MACROGOL 3350 [Suspect]
     Active Substance: POLYETHYLENE GLYCOL 3350
     Indication: PRODUCT USED FOR UNKNOWN INDICATION
     Dosage: 30 MG, Q12H
     Route: 048
  19. LEUPRORELIN ACETATE [Suspect]
     Active Substance: LEUPROLIDE ACETATE
     Indication: PRODUCT USED FOR UNKNOWN INDICATION
     Dosage: 0.25 MG, QD 7.5MG IN 1 MONTH
     Route: 030
  20. KETOROLAC [Suspect]
     Active Substance: KETOROLAC TROMETHAMINE
     Indication: PAIN
     Dosage: 20 MG, Q6H
     Route: 048
  21. CLONIDINE. [Suspect]
     Active Substance: CLONIDINE
     Indication: PRODUCT USED FOR UNKNOWN INDICATION
     Dosage: 0.05 MG, QD
     Route: 048
  22. HYDROXYCHLOROQUINE SULFATE. [Suspect]
     Active Substance: HYDROXYCHLOROQUINE SULFATE
     Indication: PRODUCT USED FOR UNKNOWN INDICATION
     Dosage: 400 MG, QD
     Route: 048
  23. LORAZEPAM. [Suspect]
     Active Substance: LORAZEPAM
     Indication: PAIN MANAGEMENT
  24. MELATONIN [Suspect]
     Active Substance: MELATONIN
     Indication: SLEEP DISORDER
     Dosage: 10 MG, QD
     Route: 048
  25. FISH OIL [Suspect]
     Active Substance: FISH OIL
     Indication: PRODUCT USED FOR UNKNOWN INDICATION
     Dosage: UNK UNK, QD (200?400?1000MG)
     Route: 048
  26. DIMENHYDRINATE. [Suspect]
     Active Substance: DIMENHYDRINATE
     Dosage: 25 MG, QD
     Route: 048
  27. CLONIDINE. [Suspect]
     Active Substance: CLONIDINE
     Dosage: 0.1 MG, QD
     Route: 048
  28. CELECOXIB. [Suspect]
     Active Substance: CELECOXIB
     Indication: PAIN MANAGEMENT
  29. DIPHENHYDRAMINE. [Suspect]
     Active Substance: DIPHENHYDRAMINE
     Indication: PRURITUS
     Dosage: 12.5 MG, Q6H
     Route: 048
  30. GABAPENTIN. [Suspect]
     Active Substance: GABAPENTIN
     Indication: BACK PAIN
     Dosage: 600 MG, Q8H
     Route: 048
     Dates: start: 2016, end: 2016
  31. LORAZEPAM. [Suspect]
     Active Substance: LORAZEPAM
     Indication: BACK PAIN
     Dosage: 2 MG, PRN
     Route: 060
     Dates: start: 2016
  32. PANTOPRAZOLE SODIUM. [Suspect]
     Active Substance: PANTOPRAZOLE SODIUM
     Indication: PRODUCT USED FOR UNKNOWN INDICATION
     Dosage: 40 MG, QD
     Route: 048
  33. RANITIDINE HYDROCHLORIDE. [Suspect]
     Active Substance: RANITIDINE HYDROCHLORIDE
     Indication: PRODUCT USED FOR UNKNOWN INDICATION
     Dosage: 150 MG, QD
     Route: 048
  34. ASCORBIC ACID. [Suspect]
     Active Substance: ASCORBIC ACID
     Indication: PRODUCT USED FOR UNKNOWN INDICATION
     Dosage: 1500 MG, QD
     Route: 048
  35. METHOCARBAMOL. [Suspect]
     Active Substance: METHOCARBAMOL
     Dosage: UNK UNK, Q12H
     Route: 048
  36. MELATONIN [Suspect]
     Active Substance: MELATONIN
     Indication: SLEEP DEFICIT
  37. METHOCARBAMOL/PARACETAMOL [Suspect]
     Active Substance: ACETAMINOPHEN\METHOCARBAMOL
     Indication: BACK PAIN
     Dosage: 400/500MG, QD
     Route: 048
  38. BACLOFEN. [Suspect]
     Active Substance: BACLOFEN
     Indication: PRODUCT USED FOR UNKNOWN INDICATION
     Dosage: 20 MG, Q8H
     Route: 048
  39. HYDROMORPHONE [Suspect]
     Active Substance: HYDROMORPHONE
     Indication: BACK PAIN
     Dosage: UNK
     Route: 065
     Dates: start: 2016
  40. PHENOBARBITAL. [Suspect]
     Active Substance: PHENOBARBITAL
     Indication: PRODUCT USED FOR UNKNOWN INDICATION
     Dosage: 30 MG, Q12H
     Route: 048
  41. METHADONE [Suspect]
     Active Substance: METHADONE HYDROCHLORIDE
     Indication: PRODUCT USED FOR UNKNOWN INDICATION
     Dosage: 0.375 MG, QD
     Route: 048

REACTIONS (6)
  - Drug dependence [Unknown]
  - Child abuse [Unknown]
  - Drug abuse [Unknown]
  - Product prescribing error [Unknown]
  - Drug ineffective [Unknown]
  - Respiratory depression [Recovered/Resolved]
